FAERS Safety Report 24778815 (Version 1)
Quarter: 2024Q4

REPORT INFORMATION
  Report Type: Spontaneous
  Country: US (occurrence: None)
  Receive Date: 20241226
  Receipt Date: 20241226
  Transmission Date: 20250115
  Serious: Yes (Disabling, Other)
  Sender: Public
  Company Number: None

PATIENT
  Age: 56 Year
  Sex: Female
  Weight: 85.5 kg

DRUGS (6)
  1. MOUNJARO [Suspect]
     Active Substance: TIRZEPATIDE
     Indication: Diabetes mellitus
     Dates: start: 20230101, end: 20241112
  2. LYUMJEV [Concomitant]
     Active Substance: INSULIN LISPRO-AABC
  3. LANTUS [Concomitant]
     Active Substance: INSULIN GLARGINE
  4. SYNJARDY [Concomitant]
     Active Substance: EMPAGLIFLOZIN\METFORMIN HYDROCHLORIDE
  5. Pioglitazone and Atorvastatin [Concomitant]
  6. OZEMPIC [Concomitant]
     Active Substance: SEMAGLUTIDE

REACTIONS (5)
  - Urinary tract infection [None]
  - Haemorrhage urinary tract [None]
  - Dizziness [None]
  - Ulcer [None]
  - Skin necrosis [None]

NARRATIVE: CASE EVENT DATE: 20240110
